FAERS Safety Report 10948044 (Version 2)
Quarter: 2015Q2

REPORT INFORMATION
  Report Type: Spontaneous
  Country: US (occurrence: US)
  Receive Date: 20150324
  Receipt Date: 20150417
  Transmission Date: 20150821
  Serious: Yes (Hospitalization)
  Sender: FDA-Public Use
  Company Number: US-009507513-1503USA009769

PATIENT
  Sex: Female

DRUGS (2)
  1. HEXADROL [Concomitant]
     Active Substance: DEXAMETHASONE
     Route: 048
  2. TEMODAR [Suspect]
     Active Substance: TEMOZOLOMIDE
     Indication: GLIOBLASTOMA
     Dosage: 440 MG, UNK
     Route: 048
     Dates: start: 2014

REACTIONS (3)
  - Influenza [Unknown]
  - Deep vein thrombosis [Unknown]
  - Drug ineffective [Unknown]

NARRATIVE: CASE EVENT DATE: 2014
